FAERS Safety Report 8372443-5 (Version None)
Quarter: 2012Q2

REPORT INFORMATION
  Report Type: 
  Country: None (occurrence: None)
  Receive Date: 20120521
  Receipt Date: 20120507
  Transmission Date: 20120825
  Serious: No
  Sender: FDA-Public Use
  Company Number: US-B.I. PHARMACEUTICALS,INC./RIDGEFIELD-2012-BP-10255BP

PATIENT
  Sex: Female

DRUGS (2)
  1. ZANTAC [Suspect]
     Route: 061
     Dates: start: 20120501, end: 20120501
  2. ZANTAC [Suspect]
     Indication: GASTROOESOPHAGEAL REFLUX DISEASE
     Route: 061

REACTIONS (3)
  - APPLICATION SITE ERYTHEMA [None]
  - URTICARIA [None]
  - INCORRECT ROUTE OF DRUG ADMINISTRATION [None]
